FAERS Safety Report 7268993-5 (Version None)
Quarter: 2011Q1

REPORT INFORMATION
  Report Type: 
  Country: None (occurrence: None)
  Receive Date: 20110201
  Receipt Date: 20110120
  Transmission Date: 20110831
  Serious: Yes (Other)
  Sender: FDA-Public Use
  Company Number: TR-BAYER-2011-006911

PATIENT
  Sex: Female

DRUGS (1)
  1. AVELOX [Suspect]
     Dosage: UNK
     Route: 048
     Dates: start: 20110118

REACTIONS (4)
  - SWELLING FACE [None]
  - HYPERSENSITIVITY [None]
  - DRUG ERUPTION [None]
  - ERYTHEMA [None]
